FAERS Safety Report 26081078 (Version 1)
Quarter: 2025Q4

REPORT INFORMATION
  Report Type: Spontaneous
  Country: US (occurrence: US)
  Receive Date: 20251124
  Receipt Date: 20251124
  Transmission Date: 20260118
  Serious: No
  Sender: ALVOGEN
  Company Number: US-ALVOGEN-2025096180

PATIENT
  Sex: Male

DRUGS (2)
  1. TERIPARATIDE [Suspect]
     Active Substance: TERIPARATIDE
     Indication: Product used for unknown indication
     Dosage: USING THIS PRODUCT FOR THE LAST 2 YEARS
  2. TERIPARATIDE [Suspect]
     Active Substance: TERIPARATIDE
     Indication: Product used for unknown indication
     Dosage: EXPIRATION DATE: UU-SEP-2025?TOOK ONE INJECTION PRIOR TO THE JAM
     Dates: start: 202501

REACTIONS (6)
  - Device malfunction [Unknown]
  - Device operational issue [Unknown]
  - Device issue [Unknown]
  - Wrong technique in product usage process [Unknown]
  - Product use issue [Unknown]
  - Drug dose omission by device [Unknown]

NARRATIVE: CASE EVENT DATE: 20250101
